FAERS Safety Report 9405513 (Version 2)
Quarter: 2014Q1

REPORT INFORMATION
  Report Type: Spontaneous
  Country: US (occurrence: US)
  Receive Date: 20130717
  Receipt Date: 20140108
  Transmission Date: 20141002
  Serious: No
  Sender: FDA-Public Use
  Company Number: US-009507513-1307USA005498

PATIENT
  Age: 21 Year
  Sex: Female
  Weight: 97.96 kg

DRUGS (1)
  1. NEXPLANON [Suspect]
     Indication: CONTRACEPTION
     Dosage: ONE ROD/THREE YEARS
     Route: 059
     Dates: start: 20130701, end: 20131118

REACTIONS (2)
  - Rash [Recovered/Resolved]
  - Weight increased [Unknown]
